FAERS Safety Report 11679521 (Version 3)
Quarter: 2015Q4

REPORT INFORMATION
  Report Type: Spontaneous
  Country: US (occurrence: US)
  Receive Date: 20151027
  Receipt Date: 20151110
  Transmission Date: 20160304
  Serious: No
  Sender: FDA-Public Use
  Company Number: US-ELI_LILLY_AND_COMPANY-US201008003504

PATIENT
  Age: 59 Year
  Sex: Female

DRUGS (7)
  1. METHADONE [Concomitant]
     Active Substance: METHADONE HYDROCHLORIDE
     Indication: PAIN
     Dosage: UNK, UNKNOWN
  2. ANALGESICS [Concomitant]
     Active Substance: UNSPECIFIED INGREDIENT
     Indication: PAIN
     Dosage: UNK, UNKNOWN
  3. FORTEO [Suspect]
     Active Substance: TERIPARATIDE
     Indication: OSTEOPOROSIS
     Dosage: 20 UG, DAILY (1/D)
     Dates: start: 20100609
  4. FORTEO [Suspect]
     Active Substance: TERIPARATIDE
     Dosage: 20 UG, QD
  5. FORTEO [Suspect]
     Active Substance: TERIPARATIDE
     Dosage: 20 UG, DAILY (1/D)
  6. FORTEO [Suspect]
     Active Substance: TERIPARATIDE
     Dosage: 20 UG, DAILY (1/D)
  7. CHANTIX [Concomitant]
     Active Substance: VARENICLINE TARTRATE
     Dosage: UNK, UNKNOWN
     Dates: start: 20101004

REACTIONS (11)
  - Abdominal discomfort [Unknown]
  - Stress [Unknown]
  - Headache [Unknown]
  - Ear discomfort [Unknown]
  - Dyskinesia [Not Recovered/Not Resolved]
  - Nausea [Unknown]
  - Muscle spasms [Recovered/Resolved]
  - Head discomfort [Unknown]
  - Insomnia [Unknown]
  - Ear pain [Unknown]
  - Eye pain [Unknown]

NARRATIVE: CASE EVENT DATE: 20101008
